FAERS Safety Report 8773281 (Version 3)
Quarter: 2012Q4

REPORT INFORMATION
  Report Type: 
  Country: US (occurrence: US)
  Receive Date: 20120907
  Receipt Date: 20121119
  Transmission Date: 20130627
  Serious: Yes (Hospitalization, Other)
  Sender: FDA-Public Use
  Company Number: US-009507513-1208USA010411

PATIENT
  Sex: Female

DRUGS (2)
  1. STROMECTOL [Suspect]
     Indication: ONCHOCERCIASIS
     Dosage: 3 DF, Once
     Route: 048
     Dates: start: 200912, end: 200912
  2. STROMECTOL [Suspect]
     Dosage: 3 DF, Once
     Route: 048
     Dates: start: 201206

REACTIONS (9)
  - Onchocerciasis [Not Recovered/Not Resolved]
  - Adverse event [Unknown]
  - Hypersensitivity [Recovered/Resolved]
  - Drug effect incomplete [Unknown]
  - Pruritus [Not Recovered/Not Resolved]
  - Tinnitus [Not Recovered/Not Resolved]
  - Inappropriate schedule of drug administration [Unknown]
  - Bone density abnormal [Unknown]
  - Off label use [Unknown]
